FAERS Safety Report 18102558 (Version 3)
Quarter: 2020Q3

REPORT INFORMATION
  Report Type: Spontaneous
  Country: CZ (occurrence: CZ)
  Receive Date: 20200803
  Receipt Date: 20200824
  Transmission Date: 20201103
  Serious: Yes (Life-Threatening, Hospitalization, Other)
  Sender: FDA-Public Use
  Company Number: CZ-AUROBINDO-AUR-APL-2020-037170

PATIENT
  Age: 67 Year
  Sex: Female
  Weight: 78 kg

DRUGS (13)
  1. ASA [Suspect]
     Active Substance: ASPIRIN
     Indication: THROMBOSIS PROPHYLAXIS
     Dosage: 100 MILLIGRAM,DOSE OF 100 MG
     Route: 065
  2. HEPARIN [Suspect]
     Active Substance: HEPARIN SODIUM
     Indication: THROMBOSIS PROPHYLAXIS
     Dosage: 2500 INTERNATIONAL UNIT
     Route: 065
  3. CLOPIDOGREL [Suspect]
     Active Substance: CLOPIDOGREL BISULFATE
     Indication: THROMBOSIS PROPHYLAXIS
     Dosage: 150 MILLIGRAM
     Route: 065
  4. CLOPIDOGREL [Suspect]
     Active Substance: CLOPIDOGREL BISULFATE
     Indication: ANTIPLATELET THERAPY
     Dosage: 300 MILLIGRAM, ONCE A DAY
     Route: 065
  5. ASA [Suspect]
     Active Substance: ASPIRIN
     Indication: ANTIPLATELET THERAPY
     Dosage: 200 MILLIGRAM,TWO DOSES
     Route: 065
  6. PROPOFOL. [Concomitant]
     Active Substance: PROPOFOL
     Indication: ANAESTHESIA
  7. FENTANYL. [Concomitant]
     Active Substance: FENTANYL
     Indication: ANAESTHESIA
  8. ROCURONIUM [Concomitant]
     Active Substance: ROCURONIUM BROMIDE
     Indication: ANAESTHESIA
  9. ROCURONIUM [Concomitant]
     Active Substance: ROCURONIUM BROMIDE
     Indication: ANAESTHETIC PREMEDICATION
     Dosage: UNK
     Route: 065
  10. SEVOFLURANE. [Concomitant]
     Active Substance: SEVOFLURANE
     Indication: ANAESTHESIA PROCEDURE
     Dosage: UNK
  11. FENTANYL. [Concomitant]
     Active Substance: FENTANYL
     Indication: ANAESTHETIC PREMEDICATION
     Dosage: UNK
     Route: 065
  12. PROPOFOL. [Concomitant]
     Active Substance: PROPOFOL
     Indication: ANAESTHETIC PREMEDICATION
     Dosage: UNK
     Route: 065
  13. SEVOFLURANE. [Concomitant]
     Active Substance: SEVOFLURANE
     Indication: ANAESTHESIA

REACTIONS (11)
  - Catheter site haemorrhage [Recovered/Resolved]
  - Anaemia [Unknown]
  - Post procedural haemorrhage [Unknown]
  - Hypothyroidism [Recovered/Resolved]
  - Product use issue [Unknown]
  - Tracheal injury [Recovered/Resolved]
  - Endotracheal intubation complication [Recovered/Resolved]
  - Glaucoma [Recovered/Resolved]
  - Melaena [Recovered/Resolved]
  - Haemoptysis [Recovered/Resolved]
  - Respiratory failure [Recovered/Resolved]
